FAERS Safety Report 18222085 (Version 1)
Quarter: 2020Q3

REPORT INFORMATION
  Report Type: Spontaneous
  Country: US (occurrence: US)
  Receive Date: 20200902
  Receipt Date: 20200902
  Transmission Date: 20201103
  Serious: Yes (Hospitalization)
  Sender: FDA-Public Use
  Company Number: None

PATIENT
  Age: 16 Year
  Sex: Female
  Weight: 45.8 kg

DRUGS (7)
  1. CYTARABINE?70 MG [Suspect]
     Active Substance: CYTARABINE
     Dates: end: 20200706
  2. METHOTREXATE (METHOTREXATE SODIUM) [Suspect]
     Active Substance: METHOTREXATE SODIUM
     Dates: end: 20200715
  3. PREDNISOLONE. [Suspect]
     Active Substance: PREDNISOLONE
     Dates: end: 20200730
  4. PREDNISONE. [Suspect]
     Active Substance: PREDNISONE
     Dates: end: 20200709
  5. VINCRISTINE SULFATE. [Suspect]
     Active Substance: VINCRISTINE SULFATE
     Dates: end: 20200729
  6. LEUCOVORIN CALCIUM?15 MG [Suspect]
     Active Substance: LEUCOVORIN CALCIUM
     Dates: end: 20200716
  7. ONCASPAR [Suspect]
     Active Substance: PEGASPARGASE
     Dates: end: 20200711

REACTIONS (9)
  - Sepsis [None]
  - Transaminases increased [None]
  - Nausea [None]
  - Ileus [None]
  - Decreased appetite [None]
  - Liver function test increased [None]
  - Posterior reversible encephalopathy syndrome [None]
  - Acute kidney injury [None]
  - Nonalcoholic fatty liver disease [None]

NARRATIVE: CASE EVENT DATE: 20200802
